FAERS Safety Report 8553687 (Version 4)
Quarter: 2012Q4

REPORT INFORMATION
  Report Type: 
  Country: MX (occurrence: MX)
  Receive Date: 20120509
  Receipt Date: 20120830
  Transmission Date: 20130627
  Serious: Yes (Death, Hospitalization)
  Sender: FDA-Public Use
  Company Number: PHHY2012MX038439

PATIENT
  Age: 78 Year
  Sex: Female

DRUGS (2)
  1. DIOVAN [Suspect]
     Indication: HYPERTENSION
     Dosage: 1 DF, daily
     Dates: start: 200911, end: 201204
  2. INSULIN [Concomitant]
     Dosage: 18 U, daily

REACTIONS (3)
  - Infarction [Fatal]
  - Pneumonia [Fatal]
  - Malaise [Fatal]
